FAERS Safety Report 23664245 (Version 3)
Quarter: 2024Q3

REPORT INFORMATION
  Report Type: Spontaneous
  Country: FR (occurrence: FR)
  Receive Date: 20240322
  Receipt Date: 20240812
  Transmission Date: 20241016
  Serious: Yes (Hospitalization, Other)
  Sender: JAZZ
  Company Number: FR-PHARMAMAR-2024PM000222

PATIENT

DRUGS (6)
  1. ZEPZELCA [Suspect]
     Active Substance: LURBINECTEDIN
     Indication: Product used for unknown indication
     Dosage: CYCLE 1 DAY 1
  2. ZEPZELCA [Suspect]
     Active Substance: LURBINECTEDIN
     Dosage: CYCLE 2
     Dates: start: 20230908
  3. ZEPZELCA [Suspect]
     Active Substance: LURBINECTEDIN
     Dosage: 50% REDUCTION
     Dates: start: 20230929
  4. PADCEV [Concomitant]
     Active Substance: ENFORTUMAB VEDOTIN-EJFV
     Indication: Small cell lung cancer
     Dosage: 6.02 MILLIGRAM
     Dates: start: 20230818
  5. MOXONIDINE [Concomitant]
     Active Substance: MOXONIDINE
  6. ELIQUIS [Concomitant]
     Active Substance: APIXABAN

REACTIONS (5)
  - Bone marrow failure [Unknown]
  - Hypothermia [Unknown]
  - Asthenia [Unknown]
  - Anaemia [Unknown]
  - Thrombocytopenia [Unknown]

NARRATIVE: CASE EVENT DATE: 20230901
